FAERS Safety Report 7014769-3 (Version None)
Quarter: 2010Q3

REPORT INFORMATION
  Report Type: 
  Country: None (occurrence: None)
  Receive Date: 20100927
  Receipt Date: 20100914
  Transmission Date: 20110219
  Serious: Yes (Hospitalization)
  Sender: FDA-Public Use
  Company Number: PHBS2006BE07362

PATIENT
  Sex: Male

DRUGS (11)
  1. ACLASTA [Suspect]
     Indication: OSTEITIS DEFORMANS
     Dosage: 5 MG
     Dates: start: 20060512
  2. CALCIUM [Concomitant]
  3. VITAMIN D [Concomitant]
  4. DAFALGAN [Concomitant]
  5. AMLODIPINE [Concomitant]
  6. BUFLOMEDIL [Concomitant]
  7. ASAFLOW [Concomitant]
  8. LIPITOR [Concomitant]
  9. REDOMEX [Concomitant]
  10. ACTRAPID HUMAN [Concomitant]
  11. INSULATARD [Concomitant]

REACTIONS (15)
  - ABDOMINAL PAIN [None]
  - BLOOD CREATINE PHOSPHOKINASE INCREASED [None]
  - BLOOD LACTATE DEHYDROGENASE INCREASED [None]
  - BLOOD POTASSIUM DECREASED [None]
  - C-REACTIVE PROTEIN INCREASED [None]
  - DYSPNOEA [None]
  - FATIGUE [None]
  - GASTROINTESTINAL MOTILITY DISORDER [None]
  - HYPOCALCAEMIA [None]
  - HYPOPHOSPHATAEMIA [None]
  - INFLUENZA LIKE ILLNESS [None]
  - INTESTINAL OBSTRUCTION [None]
  - MYOPATHY [None]
  - PYREXIA [None]
  - TREMOR [None]
